FAERS Safety Report 6765916-X (Version None)
Quarter: 2010Q2

REPORT INFORMATION
  Report Type: 
  Country: None (occurrence: None)
  Receive Date: 20100611
  Receipt Date: 20100604
  Transmission Date: 20101027
  Serious: Yes (Hospitalization)
  Sender: FDA-Public Use
  Company Number: JP-SANOFI-AVENTIS-2010SA032268

PATIENT
  Age: 72 Year
  Sex: Male
  Weight: 71.6 kg

DRUGS (4)
  1. PLAVIX [Suspect]
     Indication: LACUNAR INFARCTION
     Route: 048
     Dates: start: 20080910
  2. AMLODIPINE BESYLATE [Concomitant]
     Indication: HYPERTENSION
     Route: 048
  3. PARIET [Concomitant]
     Indication: REFLUX OESOPHAGITIS
     Route: 048
     Dates: start: 20090127
  4. LOXONIN [Concomitant]
     Dosage: 1 SHEET/DAY
     Route: 062
     Dates: start: 20090518

REACTIONS (2)
  - HAEMATURIA [None]
  - PYURIA [None]
